FAERS Safety Report 9316251 (Version 2)
Quarter: 2013Q2

REPORT INFORMATION
  Report Type: Spontaneous
  Country: US (occurrence: None)
  Receive Date: 20130522
  Receipt Date: 20130605
  Transmission Date: 20140414
  Serious: No
  Sender: FDA-Public Use
  Company Number: SPI201300352

PATIENT
  Age: 46 Year
  Sex: Female
  Weight: 56.2 kg

DRUGS (4)
  1. AMITIZA (LUBIPROSTONE) CAPSULE, 24MCG [Suspect]
     Indication: CONSTIPATION
     Route: 048
     Dates: start: 20130505, end: 201305
  2. PROCARDIA (NIFEDIPINE) [Concomitant]
  3. LOESTRIN (ETHINYLESTRADIOL, NORETHISTERONE ACETATE) [Concomitant]
  4. FLONASE (FLUTICASONE PROPIONATE) [Concomitant]

REACTIONS (2)
  - Dyspnoea [None]
  - Chest discomfort [None]
